FAERS Safety Report 9231060 (Version 1)
Quarter: 2013Q2

REPORT INFORMATION
  Report Type: Spontaneous
  Country: TR (occurrence: TR)
  Receive Date: 20130415
  Receipt Date: 20130415
  Transmission Date: 20140414
  Serious: Yes (Other)
  Sender: FDA-Public Use
  Company Number: TR-JNJFOC-20130405187

PATIENT
  Age: 65 Year
  Sex: 0

DRUGS (2)
  1. XARELTO [Suspect]
     Indication: THROMBOSIS PROPHYLAXIS
     Route: 065
  2. XARELTO [Suspect]
     Indication: KNEE ARTHROPLASTY
     Route: 065

REACTIONS (4)
  - Renal failure acute [Recovered/Resolved]
  - Blood urea increased [Recovered/Resolved]
  - Oliguria [Recovered/Resolved]
  - Blood creatine increased [Recovered/Resolved]
